FAERS Safety Report 25690903 (Version 1)
Quarter: 2025Q3

REPORT INFORMATION
  Report Type: Spontaneous
  Country: US (occurrence: None)
  Receive Date: 20250816
  Receipt Date: 20250816
  Transmission Date: 20251020
  Serious: Yes (Disabling)
  Sender: FDA-CTU
  Company Number: None

PATIENT
  Age: 78 Year
  Sex: Female

DRUGS (10)
  1. OPDIVO QVANTIG [Suspect]
     Active Substance: HYALURONIDASE-NVHY\NIVOLUMAB
     Indication: Renal cell carcinoma
     Dates: start: 20250715, end: 20250722
  2. DILAUDID [Concomitant]
     Active Substance: HYDROMORPHONE HYDROCHLORIDE
  3. LYRICA [Concomitant]
     Active Substance: PREGABALIN
  4. ROBAXIN [Concomitant]
     Active Substance: METHOCARBAMOL
  5. FLOMAX [Concomitant]
     Active Substance: TAMSULOSIN HYDROCHLORIDE
  6. SENNA [Concomitant]
     Active Substance: SENNOSIDES
  7. DEVICE [Concomitant]
     Active Substance: DEVICE
  8. bretzri inhaler [Concomitant]
  9. tiotropium BRv 18 mcg caps inhaler [Concomitant]
  10. ACETAMINOPHEN [Concomitant]
     Active Substance: ACETAMINOPHEN

REACTIONS (7)
  - Bone pain [None]
  - Arthralgia [None]
  - Arthralgia [None]
  - Pain in extremity [None]
  - Arthralgia [None]
  - Pain in extremity [None]
  - Gait disturbance [None]

NARRATIVE: CASE EVENT DATE: 20250715
